FAERS Safety Report 12627155 (Version 4)
Quarter: 2017Q2

REPORT INFORMATION
  Report Type: Report from Study
  Country: None (occurrence: FR)
  Receive Date: 20160805
  Receipt Date: 20170418
  Transmission Date: 20170830
  Serious: Yes (Hospitalization, Other)
  Sender: FDA-Public Use
  Company Number: FR-ABBVIE-16K-056-1693443-00

PATIENT
  Age: 62 Year
  Sex: Male

DRUGS (1)
  1. DUODOPA [Suspect]
     Active Substance: CARBIDOPA\LEVODOPA
     Indication: PRODUCT USED FOR UNKNOWN INDICATION
     Route: 050
     Dates: start: 201403, end: 201606

REACTIONS (4)
  - Gastrointestinal fistula [Unknown]
  - Peritonitis [Unknown]
  - Gastrointestinal complication associated with device [Unknown]
  - Gastrointestinal perforation [Unknown]

NARRATIVE: CASE EVENT DATE: 201606
